FAERS Safety Report 24716536 (Version 1)
Quarter: 2024Q4

REPORT INFORMATION
  Report Type: Spontaneous
  Country: NL (occurrence: NL)
  Receive Date: 20241210
  Receipt Date: 20241210
  Transmission Date: 20250114
  Serious: Yes (Life-Threatening)
  Sender: ACCORD
  Company Number: None

PATIENT
  Age: 67 Year
  Sex: Male
  Weight: 80.5 kg

DRUGS (4)
  1. SPIRONOLACTONE [Suspect]
     Active Substance: SPIRONOLACTONE
     Indication: Product used for unknown indication
     Dosage: 2X PER DAY 1 PIECE, STRENGTH: 25 MG
     Dates: start: 20230327, end: 20241028
  2. CARVEDILOL [Suspect]
     Active Substance: CARVEDILOL
     Indication: Portal hypertension
     Dosage: 2 X PER DAY 1 PIECE,  STRENGTH: 6,25MG
     Dates: start: 20241022, end: 20241028
  3. SODIUM POLYSTYRENE SULFONATE [Concomitant]
     Active Substance: SODIUM POLYSTYRENE SULFONATE
     Dosage: 2DD20 G, POWDER FOR ORAL/RECTAL SUSPENSION 900MG/G
  4. SODIUM BICARBONATE [Concomitant]
     Active Substance: SODIUM BICARBONATE
     Dosage: SOLUTION FOR INFUSION, 84 MG/ML (MILLIGRAM PER MILLILITER)

REACTIONS (4)
  - Bradycardia [Recovered/Resolved]
  - Rhythm idioventricular [Recovered/Resolved]
  - Sinus arrest [Recovered/Resolved]
  - Hyperkalaemia [Recovered/Resolved]
